FAERS Safety Report 14099741 (Version 4)
Quarter: 2019Q4

REPORT INFORMATION
  Report Type: Spontaneous
  Country: US (occurrence: US)
  Receive Date: 20171017
  Receipt Date: 20191212
  Transmission Date: 20200122
  Serious: No
  Sender: FDA-Public Use
  Company Number: US-PFIZER INC-2017448621

PATIENT
  Age: 55 Year
  Sex: Female
  Weight: 72.56 kg

DRUGS (5)
  1. LYRICA [Suspect]
     Active Substance: PREGABALIN
     Indication: INTERVERTEBRAL DISC DEGENERATION
     Dosage: 75 MG, 3X/DAY
     Route: 048
     Dates: start: 201610
  2. OXYCODONE [Concomitant]
     Active Substance: OXYCODONE
     Indication: BACK DISORDER
     Dosage: 10 MG, 3X/DAY
  3. LYRICA [Suspect]
     Active Substance: PREGABALIN
     Indication: INTERVERTEBRAL DISC PROTRUSION
     Dosage: 150 MG, 4X/DAY (Q 6 H (1 EVERY 6 HOURS)) [TAKE 1 CAPSULE BY MOUTH EVERY 6 HOURS]
     Route: 048
  4. LYRICA [Suspect]
     Active Substance: PREGABALIN
     Indication: NERVE COMPRESSION
     Dosage: 150 MG, 3X/DAY
     Route: 048
  5. LYRICA [Suspect]
     Active Substance: PREGABALIN
     Indication: EXOSTOSIS

REACTIONS (1)
  - Drug ineffective [Unknown]
